FAERS Safety Report 14943314 (Version 2)
Quarter: 2018Q3

REPORT INFORMATION
  Report Type: Report from Study
  Country: None (occurrence: CA)
  Receive Date: 20180528
  Receipt Date: 20180718
  Transmission Date: 20181010
  Serious: Yes (Other)
  Sender: FDA-Public Use
  Company Number: CA-ABBVIE-18K-028-2351217-00

PATIENT
  Age: 30 Year
  Sex: Female
  Weight: 40.41 kg

DRUGS (1)
  1. HUMIRA [Suspect]
     Active Substance: ADALIMUMAB
     Indication: CROHN^S DISEASE
     Route: 058
     Dates: start: 20131108

REACTIONS (7)
  - Ectopic pregnancy [Unknown]
  - Pain in extremity [Not Recovered/Not Resolved]
  - Exposure during pregnancy [Unknown]
  - Weight decreased [Recovering/Resolving]
  - Rectal abscess [Recovered/Resolved]
  - Blister [Not Recovered/Not Resolved]
  - Fistula [Not Recovered/Not Resolved]

NARRATIVE: CASE EVENT DATE: 201601
